FAERS Safety Report 12346197 (Version 2)
Quarter: 2016Q2

REPORT INFORMATION
  Report Type: Spontaneous
  Country: US (occurrence: US)
  Receive Date: 20160509
  Receipt Date: 20160608
  Transmission Date: 20160815
  Serious: No
  Sender: FDA-Public Use
  Company Number: US-PFIZER INC-2016218578

PATIENT
  Age: 73 Year
  Sex: Female
  Weight: 62 kg

DRUGS (4)
  1. CLARITIN [Suspect]
     Active Substance: LORATADINE
     Indication: HYPERSENSITIVITY
     Dosage: 10 MG, DAILY
     Route: 048
  2. ALAVERT ALLERGY [Suspect]
     Active Substance: LORATADINE
     Indication: HYPERSENSITIVITY
     Dosage: 10 MG, DAILY
  3. CLARITIN [Suspect]
     Active Substance: LORATADINE
     Dosage: 20 MG, DAILY
  4. ALAVERT ALLERGY [Suspect]
     Active Substance: LORATADINE
     Dosage: 20 MG, DAILY

REACTIONS (3)
  - Intentional product use issue [Unknown]
  - Gastric disorder [Not Recovered/Not Resolved]
  - Dry eye [Not Recovered/Not Resolved]

NARRATIVE: CASE EVENT DATE: 2013
